FAERS Safety Report 18312364 (Version 2)
Quarter: 2020Q4

REPORT INFORMATION
  Report Type: Report from Study
  Country: IN (occurrence: IN)
  Receive Date: 20200925
  Receipt Date: 20201222
  Transmission Date: 20210113
  Serious: Yes (Other)
  Sender: FDA-Public Use
  Company Number: PHHY2019IN139840

PATIENT
  Age: 45 Year
  Sex: Female

DRUGS (3)
  1. SPEXIB [Suspect]
     Active Substance: CERITINIB
     Dosage: 300 MG, QD
     Route: 048
     Dates: start: 201810, end: 20190612
  2. SPEXIB [Suspect]
     Active Substance: CERITINIB
     Dosage: 300 MG, OTHER (300 MG OD ALTERNATE WITH 150 MG OD)
     Route: 048
     Dates: start: 20190613
  3. SPEXIB [Suspect]
     Active Substance: CERITINIB
     Indication: NON-SMALL CELL LUNG CANCER
     Dosage: 450 MG, QD
     Route: 048
     Dates: start: 20180830, end: 201810

REACTIONS (2)
  - Fatigue [Unknown]
  - Blood creatinine increased [Not Recovered/Not Resolved]

NARRATIVE: CASE EVENT DATE: 201808
